FAERS Safety Report 14563300 (Version 2)
Quarter: 2018Q1

REPORT INFORMATION
  Report Type: Spontaneous
  Country: US (occurrence: US)
  Receive Date: 20180222
  Receipt Date: 20180315
  Transmission Date: 20180509
  Serious: Yes (Other)
  Sender: FDA-Public Use
  Company Number: US-SA-2018SA043526

PATIENT
  Sex: Female

DRUGS (1)
  1. ACT DRY MOUTH LOZENGE HONEY LEMON [Suspect]
     Active Substance: XYLITOL
     Dosage: DOSE: USES 6-8 DURING NIGHT
     Route: 065

REACTIONS (2)
  - Dry mouth [Unknown]
  - Blindness [Unknown]
